FAERS Safety Report 4519338-2 (Version None)
Quarter: 2004Q4

REPORT INFORMATION
  Report Type: 
  Country: None (occurrence: None)
  Receive Date: 20041206
  Receipt Date: 20041118
  Transmission Date: 20050328
  Serious: Yes (Other)
  Sender: FDA-Public Use
  Company Number: DE-GLAXOSMITHKLINE-D0045288A

PATIENT
  Age: 74 Year
  Sex: Male

DRUGS (11)
  1. VIANI FORTE [Suspect]
     Route: 065
     Dates: start: 19990901
  2. SEREVENT [Concomitant]
     Route: 065
     Dates: end: 19990801
  3. FLUTICASONE PROPIONATE [Concomitant]
     Route: 065
     Dates: end: 19990801
  4. THEOPHYLLINE [Concomitant]
     Dosage: 300MG TWICE PER DAY
     Route: 065
  5. SPIRIVA [Concomitant]
     Route: 065
  6. OMNIC [Concomitant]
     Route: 065
  7. MAGNESIUM VERLA [Concomitant]
     Route: 065
  8. LISINOPRIL [Concomitant]
     Dosage: 5MG PER DAY
     Route: 065
  9. VITAMIN E [Concomitant]
     Route: 065
  10. ACC [Concomitant]
     Dosage: 600MG TWICE PER DAY
     Route: 065
  11. ALBUTEROL [Concomitant]
     Route: 065

REACTIONS (13)
  - BLADDER CANDIDIASIS [None]
  - CATARACT [None]
  - CHEST DISCOMFORT [None]
  - CORONARY ARTERY SURGERY [None]
  - DIPLOPIA [None]
  - DYSPNOEA EXERTIONAL [None]
  - FUNGUS STOOL IDENTIFIED [None]
  - FUNGUS URINE TEST POSITIVE [None]
  - MUSCLE CRAMP [None]
  - MYALGIA [None]
  - OEDEMA PERIPHERAL [None]
  - PNEUMONIA [None]
  - VISUAL DISTURBANCE [None]
